FAERS Safety Report 14223071 (Version 1)
Quarter: 2017Q4

REPORT INFORMATION
  Report Type: Spontaneous
  Country: US (occurrence: US)
  Receive Date: 20171124
  Receipt Date: 20171124
  Transmission Date: 20180321
  Serious: No
  Sender: FDA-Public Use
  Company Number: US-JNJFOC-20171030284

PATIENT
  Age: 62 Year
  Sex: Female
  Weight: 57.61 kg

DRUGS (4)
  1. MERCAPTOPURINE. [Concomitant]
     Active Substance: MERCAPTOPURINE
     Route: 065
  2. LIALDA [Concomitant]
     Active Substance: MESALAMINE
     Route: 065
  3. RECLAST [Concomitant]
     Active Substance: ZOLEDRONIC ACID
     Route: 065
  4. REMICADE [Suspect]
     Active Substance: INFLIXIMAB
     Indication: COLITIS ULCERATIVE
     Route: 042
     Dates: start: 20171011

REACTIONS (1)
  - Herpes zoster [Recovering/Resolving]

NARRATIVE: CASE EVENT DATE: 201710
